FAERS Safety Report 4852289-2 (Version None)
Quarter: 2005Q4

REPORT INFORMATION
  Report Type: 
  Country: None (occurrence: None)
  Receive Date: 20051213
  Receipt Date: 20041004
  Transmission Date: 20060501
  Serious: Yes (Death, Hospitalization, Other)
  Sender: FDA-Public Use
  Company Number: US-MERCK-0410USA00279

PATIENT
  Age: 63 Year
  Sex: Female
  Weight: 58 kg

DRUGS (34)
  1. VIOXX [Suspect]
     Indication: ARTHRALGIA
     Route: 048
     Dates: start: 20010405, end: 20040526
  2. ULTRACET [Concomitant]
     Indication: ARTHRALGIA
     Route: 065
     Dates: start: 20030614, end: 20040528
  3. ULTRACET [Concomitant]
     Indication: BACK PAIN
     Route: 065
     Dates: start: 20030614, end: 20040528
  4. TRAMADOL HYDROCHLORIDE [Concomitant]
     Indication: ARTHRALGIA
     Route: 065
     Dates: start: 20030620, end: 20040528
  5. TRAMADOL HYDROCHLORIDE [Concomitant]
     Indication: BACK PAIN
     Route: 065
     Dates: start: 20030620, end: 20040528
  6. CARDIZEM [Concomitant]
     Indication: HYPERTENSION
     Route: 065
     Dates: start: 20010321, end: 20040526
  7. CARDIZEM [Concomitant]
     Indication: TACHYCARDIA
     Route: 065
     Dates: start: 20010321, end: 20040526
  8. PROPOXYPHENE NAPSYLATE [Concomitant]
     Route: 065
     Dates: start: 20021019, end: 20021026
  9. HYDROCODONE BITARTRATE [Concomitant]
     Route: 065
     Dates: start: 20030227, end: 20030414
  10. TUSSIONEX (CHLORPHENIRAMINE POLISTIREX (+) HYDROCODONE POLISTIREX) [Concomitant]
     Route: 065
  11. ESTRADIOL [Concomitant]
     Route: 065
  12. COMBIVENT [Concomitant]
     Route: 065
  13. PRILOSEC [Concomitant]
     Route: 065
  14. ESTRATEST [Concomitant]
     Route: 065
  15. MEDROXYPROGESTERONE ACETATE [Concomitant]
     Route: 065
  16. NULYTELY [Concomitant]
     Route: 065
  17. PREVACID [Concomitant]
     Route: 065
  18. DILTIAZEM MALATE [Concomitant]
     Route: 065
  19. RANITIDINE [Concomitant]
     Route: 065
  20. PROVERA [Concomitant]
     Route: 065
  21. LORATADINE [Concomitant]
     Route: 065
  22. LORAZEPAM [Concomitant]
     Route: 065
  23. ATROPINE [Concomitant]
     Route: 065
  24. PANLOR SS [Concomitant]
     Route: 065
  25. ZITHROMAX [Concomitant]
     Route: 065
  26. TRI-MAX V [Concomitant]
     Route: 065
  27. LIPITOR [Concomitant]
     Route: 065
  28. TEMAZEPAM [Concomitant]
     Route: 065
  29. DOXEPIN HYDROCHLORIDE [Concomitant]
     Route: 065
  30. ALPRAZOLAM [Concomitant]
     Route: 065
  31. FLEXERIL [Concomitant]
     Route: 065
  32. LEXAPRO [Concomitant]
     Route: 065
  33. NEXIUM [Concomitant]
     Route: 065
  34. OXYCODONE AND ACETAMINOPHEN [Concomitant]
     Route: 065

REACTIONS (5)
  - ABDOMINAL PAIN [None]
  - COUGH [None]
  - GALLBLADDER DISORDER [None]
  - MYOCARDIAL INFARCTION [None]
  - PALPITATIONS [None]
